FAERS Safety Report 10185732 (Version 2)
Quarter: 2014Q2

REPORT INFORMATION
  Report Type: Spontaneous
  Country: US (occurrence: US)
  Receive Date: 20140521
  Receipt Date: 20140630
  Transmission Date: 20141212
  Serious: No
  Sender: FDA-Public Use
  Company Number: US-GILEAD-2014-0102674

PATIENT
  Age: 77 Year
  Sex: Female

DRUGS (3)
  1. RANEXA [Suspect]
     Indication: PRODUCT USED FOR UNKNOWN INDICATION
     Dosage: 1000 MG, BID
     Route: 065
     Dates: start: 20140507, end: 20140511
  2. RANEXA [Suspect]
     Dosage: 500 MG, BID
     Route: 065
     Dates: start: 20131024
  3. RANEXA [Suspect]
     Dosage: 500 MG, UNK
     Route: 065
     Dates: start: 20140618

REACTIONS (4)
  - Dysarthria [Recovered/Resolved]
  - Dizziness [Recovered/Resolved]
  - Nausea [Recovered/Resolved]
  - Tremor [Unknown]
